FAERS Safety Report 20834074 (Version 1)
Quarter: 2022Q2

REPORT INFORMATION
  Report Type: Spontaneous
  Country: BR (occurrence: BR)
  Receive Date: 20220516
  Receipt Date: 20220516
  Transmission Date: 20220721
  Serious: Yes (Life-Threatening, Other)
  Sender: FDA-Public Use
  Company Number: BR-JNJFOC-20220516783

PATIENT
  Age: 18 Year
  Sex: Male

DRUGS (1)
  1. SPRAVATO [Suspect]
     Active Substance: ESKETAMINE
     Indication: Product used for unknown indication
     Dosage: 2 SESSIONS

REACTIONS (4)
  - Suicide attempt [Unknown]
  - Suicidal behaviour [Unknown]
  - Suicidal ideation [Unknown]
  - Disease progression [Unknown]
